FAERS Safety Report 14784622 (Version 1)
Quarter: 2018Q2

REPORT INFORMATION
  Report Type: Spontaneous
  Country: AR (occurrence: AR)
  Receive Date: 20180420
  Receipt Date: 20180420
  Transmission Date: 20180711
  Serious: Yes (Other)
  Sender: FDA-Public Use
  Company Number: AR-PFIZER INC-2018160585

PATIENT
  Age: 68 Year
  Sex: Female

DRUGS (1)
  1. IBUPIRAC [Suspect]
     Active Substance: IBUPROFEN
     Indication: ARTHRALGIA
     Dosage: UNK

REACTIONS (1)
  - Coeliac disease [Unknown]
